FAERS Safety Report 23788408 (Version 4)
Quarter: 2024Q2

REPORT INFORMATION
  Report Type: Spontaneous
  Country: JP (occurrence: JP)
  Receive Date: 20240426
  Receipt Date: 20240607
  Transmission Date: 20240715
  Serious: Yes (Death, Hospitalization, Other)
  Sender: FDA-Public Use
  Company Number: JP-UNITED THERAPEUTICS-UNT-2024-008544

PATIENT
  Age: 75 Year
  Sex: Male

DRUGS (15)
  1. TYVASO [Suspect]
     Active Substance: TREPROSTINIL
     Indication: Idiopathic pulmonary fibrosis
     Dosage: 54 ?G, QID
  2. TYVASO [Suspect]
     Active Substance: TREPROSTINIL
     Dosage: UNK
     Dates: start: 20240315
  3. OPSUMIT [Concomitant]
     Active Substance: MACITENTAN
     Indication: Idiopathic pulmonary fibrosis
     Dosage: UNK
     Route: 065
  4. BIO-THREE [Concomitant]
     Active Substance: HERBALS
     Indication: Product used for unknown indication
     Dosage: UNK
     Route: 065
  5. AZOSEMIDE [Concomitant]
     Active Substance: AZOSEMIDE
     Indication: Product used for unknown indication
     Dosage: UNK
     Route: 065
  6. TOLVAPTAN [Concomitant]
     Active Substance: TOLVAPTAN
     Indication: Product used for unknown indication
     Dosage: UNK
     Route: 065
  7. SPIRONOLACTONE [Concomitant]
     Active Substance: SPIRONOLACTONE
     Indication: Product used for unknown indication
     Dosage: UNK
     Route: 065
  8. MIGLITOL [Concomitant]
     Active Substance: MIGLITOL
     Indication: Product used for unknown indication
     Dosage: UNK
     Route: 065
  9. VILDAGLIPTIN [Concomitant]
     Active Substance: VILDAGLIPTIN
     Indication: Product used for unknown indication
     Dosage: UNK
     Route: 065
  10. METGLUCO [Concomitant]
     Active Substance: METFORMIN HYDROCHLORIDE
     Indication: Product used for unknown indication
     Dosage: UNK
     Route: 065
  11. IPRAGLIFLOZIN L-PROLINE [Concomitant]
     Active Substance: IPRAGLIFLOZIN L-PROLINE
     Indication: Product used for unknown indication
     Dosage: UNK
     Route: 065
  12. EDOXABAN TOSYLATE [Concomitant]
     Active Substance: EDOXABAN TOSYLATE
     Indication: Product used for unknown indication
     Dosage: UNK
     Route: 065
  13. BISOPROLOL [Concomitant]
     Active Substance: BISOPROLOL\BISOPROLOL FUMARATE
     Indication: Product used for unknown indication
     Dosage: UNK
     Route: 065
  14. CARBOCYSTEINE [Concomitant]
     Active Substance: CARBOCYSTEINE
     Indication: Product used for unknown indication
     Dosage: UNK
     Route: 065
  15. ENALAPRIL [Concomitant]
     Active Substance: ENALAPRIL
     Indication: Product used for unknown indication
     Dosage: UNK
     Route: 065

REACTIONS (5)
  - Cardiac failure [Fatal]
  - Hypoxia [Fatal]
  - Idiopathic pulmonary fibrosis [Unknown]
  - COVID-19 [Unknown]
  - Off label use [Recovered/Resolved]

NARRATIVE: CASE EVENT DATE: 20240315
